FAERS Safety Report 4705051-5 (Version None)
Quarter: 2005Q2

REPORT INFORMATION
  Report Type: 
  Country: None (occurrence: None)
  Receive Date: 20050629
  Receipt Date: 20050620
  Transmission Date: 20051028
  Serious: Yes (Other)
  Sender: FDA-Public Use
  Company Number: 215210

PATIENT
  Age: 39 Year
  Sex: Male

DRUGS (14)
  1. XOLAIR [Suspect]
     Indication: ASTHMA
     Dosage: Q2W, SUBCUTANEOUS
     Route: 058
     Dates: start: 20040101
  2. VERAPAMIL [Concomitant]
  3. ALBUTEROL INHALER (ALBUTEROL, ALBUTEROL SULFATE) [Concomitant]
  4. SINGULAIR [Concomitant]
  5. THEOPHYLLINE [Concomitant]
  6. FLEXERIL [Concomitant]
  7. VALIUM [Concomitant]
  8. NEXIUM (ESOMPEPRZOLE MAGNESIUM) [Concomitant]
  9. FLOVENT [Concomitant]
  10. SEREVENT [Concomitant]
  11. FLONASE [Concomitant]
  12. XOPENEX [Concomitant]
  13. VICODIN [Concomitant]
  14. KCL (POTASSIUM CHLORIDE) [Concomitant]

REACTIONS (4)
  - BLOOD PRESSURE INCREASED [None]
  - OEDEMA [None]
  - SENSORY DISTURBANCE [None]
  - WEIGHT FLUCTUATION [None]
